FAERS Safety Report 7927916-3 (Version None)
Quarter: 2011Q4

REPORT INFORMATION
  Report Type: 
  Country: None (occurrence: None)
  Receive Date: 20111118
  Receipt Date: 20111110
  Transmission Date: 20120403
  Serious: Yes (Other)
  Sender: FDA-Public Use
  Company Number: NL-B.I. PHARMACEUTICALS,INC./RIDGEFIELD-2011-NL-00354NL

PATIENT
  Sex: Male

DRUGS (16)
  1. IRBESARTAN [Concomitant]
  2. BERODUAL DOSISAEROSOL [Suspect]
     Indication: CHRONIC OBSTRUCTIVE PULMONARY DISEASE
     Dosage: 8 PUF
     Route: 055
  3. CALCIUM CARBONATE [Concomitant]
     Dosage: 1 ANZ
     Route: 048
  4. OXAZEPAM [Concomitant]
  5. ACETYLCYSTEINE [Suspect]
  6. FORADIL [Concomitant]
     Indication: CHRONIC OBSTRUCTIVE PULMONARY DISEASE
     Dosage: 6 PUF
     Route: 055
  7. METOPROLOL SUCCINAAT [Concomitant]
     Dosage: 100 MG
  8. ACTONEL [Concomitant]
     Dosage: 5 MG
  9. FUROSEMIDE [Concomitant]
  10. SPIRIVA [Suspect]
     Indication: CHRONIC OBSTRUCTIVE PULMONARY DISEASE
     Dosage: 2 PUF
     Route: 055
  11. VATOUD [Concomitant]
     Indication: ANTICOAGULANT THERAPY
  12. BUDESONIDE [Concomitant]
     Indication: CHRONIC OBSTRUCTIVE PULMONARY DISEASE
     Dosage: 4 PUF
     Route: 055
  13. PREDNISONE [Concomitant]
     Indication: CHRONIC OBSTRUCTIVE PULMONARY DISEASE
     Dosage: 10 MG
     Route: 048
  14. PANTOPRAZOLE [Concomitant]
     Dosage: 40 MG
  15. DOXYCYCLINE [Concomitant]
     Indication: INFECTION PROPHYLAXIS
  16. VESICARE [Concomitant]
     Dosage: 5 MG

REACTIONS (2)
  - MYOCARDIAL INFARCTION [None]
  - PRODUCT TASTE ABNORMAL [None]
